FAERS Safety Report 9148787 (Version 1)
Quarter: 2013Q1

REPORT INFORMATION
  Report Type: Spontaneous
  Country: US (occurrence: None)
  Receive Date: 20130227
  Receipt Date: 20130227
  Transmission Date: 20140127
  Serious: Yes (Other)
  Sender: FDA-Public Use
  Company Number: None

PATIENT
  Age: 50 Year
  Sex: Male
  Weight: 70.31 kg

DRUGS (1)
  1. BOTOX [Suspect]
     Indication: MIGRAINE
     Dosage: 30 INJECTIONS ONCE
     Dates: start: 20121231, end: 20121231

REACTIONS (6)
  - Neck mass [None]
  - Muscle tightness [None]
  - Joint range of motion decreased [None]
  - Headache [None]
  - Migraine [None]
  - Pain [None]
